FAERS Safety Report 5211662-3 (Version None)
Quarter: 2007Q1

REPORT INFORMATION
  Report Type: 
  Country: None (occurrence: None)
  Receive Date: 20070117
  Receipt Date: 20070117
  Transmission Date: 20070707
  Serious: Yes (Other)
  Sender: FDA-Public Use
  Company Number: None

PATIENT
  Age: 56 Year
  Sex: Female
  Weight: 61.2356 kg

DRUGS (3)
  1. CREST SENSITIVITY MAXIMUM STRENGTH PROCTOR + GAMBLE [Suspect]
     Indication: SENSITIVITY OF TEETH
     Dosage: 1 INCH STRIP OF TOOTHPASTE 2X DAILY DENTAL
     Route: 004
     Dates: start: 19850101, end: 20060318
  2. SENSODYNE TOOTHPASTE [Concomitant]
  3. CREST SENSITIVITY [Concomitant]

REACTIONS (6)
  - ABDOMINAL PAIN [None]
  - DIARRHOEA [None]
  - FACIAL SPASM [None]
  - MIGRAINE [None]
  - NERVOUS SYSTEM DISORDER [None]
  - VOMITING [None]
